FAERS Safety Report 4777148-5 (Version None)
Quarter: 2005Q3

REPORT INFORMATION
  Report Type: 
  Country: None (occurrence: None)
  Receive Date: 20050923
  Receipt Date: 20050912
  Transmission Date: 20060218
  Serious: Yes (Disabling)
  Sender: FDA-Public Use
  Company Number: US-ROCHE-417673

PATIENT
  Sex: Male

DRUGS (3)
  1. KLONOPIN [Suspect]
     Indication: ANXIETY
     Dosage: THERAPY WAS TAPERED TO AN UNKNOWN DOSAGE ON AN UNKNOWN DATE.
     Route: 048
     Dates: start: 20050315
  2. WELLBUTRIN [Concomitant]
     Route: 048
  3. RITALIN [Concomitant]
     Route: 048

REACTIONS (3)
  - ANGER [None]
  - ANXIETY [None]
  - PANIC ATTACK [None]
